FAERS Safety Report 18173173 (Version 1)
Quarter: 2020Q3

REPORT INFORMATION
  Report Type: Spontaneous
  Country: US (occurrence: US)
  Receive Date: 20200819
  Receipt Date: 20200819
  Transmission Date: 20201103
  Serious: No
  Sender: FDA-Public Use
  Company Number: US-PFIZER INC-2019181189

PATIENT
  Age: 78 Year
  Sex: Female
  Weight: 94.26 kg

DRUGS (5)
  1. LYRICA [Suspect]
     Active Substance: PREGABALIN
     Indication: FIBROMYALGIA
     Dosage: 600 MG, 1X/DAY (EVERY AFTERNOON)
     Route: 048
  2. LYRICA [Suspect]
     Active Substance: PREGABALIN
     Indication: OSTEOARTHRITIS
     Dosage: 600 MG, 4X/DAY (2 PO QID (4 TIMES A DAY))
     Route: 048
  3. LYRICA [Suspect]
     Active Substance: PREGABALIN
     Indication: NEUROPATHY PERIPHERAL
     Dosage: 600 MG, 2XDAY [TAKE 2 CAPS TWO TIMES A DAY]
     Route: 048
  4. LYRICA [Suspect]
     Active Substance: PREGABALIN
     Indication: OSTEOPOROSIS
     Dosage: 600 MG, DAILY [TAKE 2 CAPSULES BY MOUTH EVERY DAY]
     Route: 048
  5. LYRICA [Suspect]
     Active Substance: PREGABALIN
     Dosage: 600 MG, 1X/DAY [300MG, 2 CAPSULES BY MOUTH ONCE DAILY AS DIRECTED BY THE PHYSICIAN]
     Route: 048

REACTIONS (3)
  - Prescribed overdose [Unknown]
  - Nerve injury [Unknown]
  - Pain in extremity [Not Recovered/Not Resolved]
